FAERS Safety Report 6027532-7 (Version None)
Quarter: 2009Q1

REPORT INFORMATION
  Report Type: 
  Country: None (occurrence: None)
  Receive Date: 20090105
  Receipt Date: 20081218
  Transmission Date: 20090719
  Serious: Yes (Hospitalization)
  Sender: FDA-Public Use
  Company Number: JP-PFIZER INC-2008152293

PATIENT
  Sex: Female

DRUGS (2)
  1. CELECOX [Suspect]
     Dosage: 100 MG, 2X/DAY
     Route: 048
     Dates: start: 20081125, end: 20081208
  2. MUCOSTA [Suspect]
     Dosage: 100 MG, 2X/DAY
     Route: 048
     Dates: start: 20081125, end: 20081208

REACTIONS (2)
  - ENANTHEMA [None]
  - ERYTHEMA MULTIFORME [None]
